FAERS Safety Report 7690906-2 (Version None)
Quarter: 2011Q3

REPORT INFORMATION
  Report Type: 
  Country: None (occurrence: None)
  Receive Date: 20110817
  Receipt Date: 20110817
  Transmission Date: 20111222
  Serious: Yes (Hospitalization)
  Sender: FDA-Public Use
  Company Number: None

PATIENT
  Sex: Male
  Weight: 130.9 kg

DRUGS (3)
  1. PENTOSTATIN [Suspect]
     Dosage: 10 MG
  2. CYCLOPHOSPHAMIDE [Suspect]
     Dosage: 1512 MG
  3. RITUXIMAB (MOAB C2B8 ANTI CD20, CHIMERIC) [Suspect]
     Dosage: 945 MG

REACTIONS (1)
  - LYMPHOPENIA [None]
